FAERS Safety Report 23864922 (Version 2)
Quarter: 2024Q2

REPORT INFORMATION
  Report Type: Spontaneous
  Country: CN (occurrence: CN)
  Receive Date: 20240516
  Receipt Date: 20240519
  Transmission Date: 20240715
  Serious: Yes (Hospitalization)
  Sender: FDA-Public Use
  Company Number: CN-BEIGENE-BGN-2024-007227

PATIENT

DRUGS (7)
  1. TISLELIZUMAB [Suspect]
     Active Substance: TISLELIZUMAB
     Indication: Gastrointestinal carcinoma
     Dosage: 200 MILLIGRAM, Q3WK
     Route: 041
     Dates: start: 20240427
  2. CISPLATIN [Suspect]
     Active Substance: CISPLATIN
     Indication: Gastrointestinal carcinoma
     Dosage: 39 MILLIGRAM, QD
     Route: 041
     Dates: start: 20240427
  3. ETOPOSIDE [Suspect]
     Active Substance: ETOPOSIDE
     Indication: Gastrointestinal carcinoma
     Dosage: 0.16 GRAM, QD
     Route: 041
     Dates: start: 20240427
  4. SODIUM CHLORIDE [Concomitant]
     Active Substance: SODIUM CHLORIDE
     Indication: Vehicle solution use
     Dosage: 400 MILLILITER
     Route: 041
     Dates: start: 20240427, end: 20240429
  5. SODIUM CHLORIDE [Concomitant]
     Active Substance: SODIUM CHLORIDE
     Dosage: 250 MILLILITER
     Route: 041
     Dates: start: 20240427, end: 20240429
  6. SODIUM CHLORIDE [Concomitant]
     Active Substance: SODIUM CHLORIDE
     Dosage: 250 MILLILITER
     Route: 041
     Dates: start: 20240427, end: 20240427
  7. DEXTROSE [Concomitant]
     Active Substance: DEXTROSE\DEXTROSE MONOHYDRATE
     Indication: Vehicle solution use
     Dosage: 250 MILLILITER
     Route: 041
     Dates: start: 20240427, end: 20240429

REACTIONS (4)
  - Myelosuppression [Recovering/Resolving]
  - White blood cell count decreased [Recovering/Resolving]
  - Neutrophil count decreased [Recovering/Resolving]
  - Platelet count decreased [Recovering/Resolving]

NARRATIVE: CASE EVENT DATE: 20240505
